FAERS Safety Report 5963036-5 (Version None)
Quarter: 2008Q4

REPORT INFORMATION
  Report Type: 
  Country: None (occurrence: None)
  Receive Date: 20081120
  Receipt Date: 20081113
  Transmission Date: 20090506
  Serious: Yes (Hospitalization, Disabling)
  Sender: FDA-Public Use
  Company Number: JP-1167514

PATIENT
  Age: 75 Year
  Sex: Male

DRUGS (14)
  1. TRAVATAN [Suspect]
     Indication: OPEN ANGLE GLAUCOMA
     Dosage: 1 GTT OU ED, OPHTHALMIC
     Route: 047
     Dates: start: 20081002, end: 20081003
  2. AZOPT [Concomitant]
  3. HYALEIN (HYALURONATE SODIUM) [Concomitant]
  4. ASPIRIN [Concomitant]
  5. WARFARIN POTASSIUM (WARFARIN POTASSIUM) [Concomitant]
  6. TICLOPIDINE HCL [Concomitant]
  7. MOSAPRIDE CITRATE (MOSAPRIDE CITRATE) [Concomitant]
  8. COLESTILAN (COLESTILAN) [Concomitant]
  9. MAGNESIUM OXIDE (MAGNESIUM OXIDE) [Concomitant]
  10. OMEPRAZOLE [Concomitant]
  11. HERBAL PREPARATION (HERBAL PREPARATION) [Concomitant]
  12. CRESTOR [Concomitant]
  13. CARVEDILOL [Concomitant]
  14. ISOSORBIDE DINITRATE [Concomitant]

REACTIONS (6)
  - CORNEAL OPACITY [None]
  - EYE DISCHARGE [None]
  - EYELID OEDEMA [None]
  - PNEUMOCOCCAL INFECTION [None]
  - ULCERATIVE KERATITIS [None]
  - VISUAL ACUITY REDUCED [None]
